FAERS Safety Report 13188855 (Version 1)
Quarter: 2017Q1

REPORT INFORMATION
  Report Type: Spontaneous
  Country: US (occurrence: US)
  Receive Date: 20170205
  Receipt Date: 20170205
  Transmission Date: 20170428
  Serious: Yes (Other)
  Sender: FDA-Public Use
  Company Number: None

PATIENT
  Age: 81 Year
  Sex: Male
  Weight: 74.25 kg

DRUGS (8)
  1. OCTREOTIDE. [Suspect]
     Active Substance: OCTREOTIDE
     Indication: DIARRHOEA HAEMORRHAGIC
     Dosage: ?          QUANTITY:1 IV DOSE;OTHER ROUTE:INFILTRATED?
     Route: 042
     Dates: start: 20170130, end: 20170130
  2. CERTRIZINE [Concomitant]
  3. FOLIC ACID. [Concomitant]
     Active Substance: FOLIC ACID
  4. EYE VITAMIN WITH LUTEIN [Concomitant]
  5. METOPROLOL. [Concomitant]
     Active Substance: METOPROLOL
  6. KRILL OIL [Concomitant]
     Active Substance: DIETARY SUPPLEMENT
  7. OXYBUTININ [Concomitant]
     Active Substance: OXYBUTYNIN
  8. MULTIVITAMIN [Concomitant]
     Active Substance: VITAMINS

REACTIONS (5)
  - Peripheral swelling [None]
  - Injection site extravasation [None]
  - Infusion site vesicles [None]
  - Wound [None]
  - Skin exfoliation [None]

NARRATIVE: CASE EVENT DATE: 20170130
